FAERS Safety Report 7261027-8 (Version None)
Quarter: 2011Q1

REPORT INFORMATION
  Report Type: 
  Country: None (occurrence: None)
  Receive Date: 20110130
  Receipt Date: 20101112
  Transmission Date: 20110831
  Serious: No
  Sender: FDA-Public Use
  Company Number: US-ABBOTT-10P-163-0685356-00

PATIENT
  Sex: Male
  Weight: 72.64 kg

DRUGS (6)
  1. LEALDADE [Concomitant]
     Indication: CROHN'S DISEASE
     Dosage: 3 IN MORNING
     Route: 048
  2. FLOVENT [Concomitant]
     Indication: OESOPHAGITIS
     Dosage: INH/SWALLOWS
  3. FOLIC ACID [Concomitant]
     Indication: POLYP
  4. GEMFIBROZIL [Concomitant]
     Indication: BLOOD TRIGLYCERIDES INCREASED
  5. HUMIRA [Suspect]
     Indication: CROHN'S DISEASE
     Dates: start: 20100801
  6. ENTOCORT EC [Concomitant]
     Indication: CROHN'S DISEASE
     Dosage: 3 IN AM

REACTIONS (7)
  - SKIN EXFOLIATION [None]
  - RASH PUSTULAR [None]
  - HAEMORRHAGE [None]
  - INGROWN HAIR [None]
  - RASH PAPULAR [None]
  - TOOTH DISORDER [None]
  - SKIN FISSURES [None]
